FAERS Safety Report 4616485-1 (Version None)
Quarter: 2005Q1

REPORT INFORMATION
  Report Type: 
  Country: None (occurrence: None)
  Receive Date: 20050318
  Receipt Date: 20050307
  Transmission Date: 20050727
  Serious: Yes (Hospitalization, Other)
  Sender: FDA-Public Use
  Company Number: 2005042578

PATIENT
  Age: 49 Year
  Sex: Male
  Weight: 83.9154 kg

DRUGS (4)
  1. ARTHROTEC [Suspect]
     Indication: SPONDYLITIS
     Dosage: 150 MG (75 MG, 2 IN 1 D), ORAL
     Route: 048
     Dates: start: 20000101, end: 20020101
  2. ACETYLSALICYLIC ACID SRT [Concomitant]
  3. METOPORLOL (METOPROLOL) [Concomitant]
  4. LISINOPIRL (LISINOPRIL) [Concomitant]

REACTIONS (4)
  - ARTERIAL RESTENOSIS [None]
  - BLOOD CHOLESTEROL INCREASED [None]
  - BLOOD POTASSIUM INCREASED [None]
  - CARPAL TUNNEL SYNDROME [None]
